FAERS Safety Report 6296624-X (Version None)
Quarter: 2009Q3

REPORT INFORMATION
  Report Type: 
  Country: None (occurrence: None)
  Receive Date: 20090804
  Receipt Date: 20090731
  Transmission Date: 20100115
  Serious: Yes (Death)
  Sender: FDA-Public Use
  Company Number: IT-BRISTOL-MYERS SQUIBB COMPANY-14723365

PATIENT
  Age: 72 Year
  Sex: Female

DRUGS (7)
  1. COUMADIN [Suspect]
     Route: 048
     Dates: start: 20090501, end: 20090612
  2. ZOLOFT [Suspect]
     Route: 048
     Dates: start: 20090501, end: 20090612
  3. PANTOPRAZOLE SODIUM [Concomitant]
     Route: 048
  4. EUTIROX [Concomitant]
     Route: 048
  5. COVERSYL [Concomitant]
     Route: 048
  6. TENORETIC 100 [Concomitant]
     Route: 048
  7. TAVOR [Concomitant]
     Dosage: TAVOR 1 MG TABS
     Route: 048

REACTIONS (2)
  - HEPATIC FAILURE [None]
  - LIVER DISORDER [None]
